FAERS Safety Report 13177341 (Version 1)
Quarter: 2017Q1

REPORT INFORMATION
  Report Type: Report from Study
  Country: US (occurrence: US)
  Receive Date: 20170201
  Receipt Date: 20170201
  Transmission Date: 20170428
  Serious: No
  Sender: FDA-Public Use
  Company Number: US-EXELIXIS-CABO-16005944

PATIENT
  Sex: Male

DRUGS (7)
  1. VITAMIN D [Concomitant]
     Active Substance: CHOLECALCIFEROL
  2. COMETRIQ [Suspect]
     Active Substance: CABOZANTINIB S-MALATE
     Dosage: 100 MG, QD
     Route: 048
     Dates: start: 20160129, end: 201602
  3. COMETRIQ [Suspect]
     Active Substance: CABOZANTINIB S-MALATE
     Dosage: 80 MG, QD
     Route: 048
     Dates: start: 201602, end: 201603
  4. ATENOLOL. [Concomitant]
     Active Substance: ATENOLOL
  5. FISH OIL [Concomitant]
     Active Substance: FISH OIL
  6. OXYCODONE [Concomitant]
     Active Substance: OXYCODONE
  7. COMETRIQ [Suspect]
     Active Substance: CABOZANTINIB S-MALATE
     Indication: THYROID CANCER
     Dosage: 100 MG, QD
     Route: 048
     Dates: start: 20151227, end: 201601

REACTIONS (10)
  - Anal fissure [Recovering/Resolving]
  - Stomatitis [Recovering/Resolving]
  - Blood pressure fluctuation [Not Recovered/Not Resolved]
  - Limb discomfort [Unknown]
  - Pain in extremity [Not Recovered/Not Resolved]
  - Diarrhoea [Not Recovered/Not Resolved]
  - Musculoskeletal chest pain [Unknown]
  - Dysphonia [Not Recovered/Not Resolved]
  - Haemorrhoids [Unknown]
  - Erythema [Unknown]
